FAERS Safety Report 4386958-8 (Version None)
Quarter: 2004Q2

REPORT INFORMATION
  Report Type: 
  Country: None (occurrence: None)
  Receive Date: 20040625
  Receipt Date: 20040615
  Transmission Date: 20050107
  Serious: Yes (Hospitalization)
  Sender: FDA-Public Use
  Company Number: A001-002-006080

PATIENT
  Age: 88 Year
  Sex: Female
  Weight: 50 kg

DRUGS (9)
  1. ARICEPT [Suspect]
     Indication: VASCULAR DEMENTIA
     Dosage: 10 MG, 1 IN 1 D, ORAL
     Route: 048
     Dates: start: 20030101, end: 20040513
  2. ENTERIC COATED ACETYLSALICYLIC ACID (ACETYLSALICYLIC ACID) [Concomitant]
  3. ACETAMINOPHEN [Concomitant]
  4. CITALOPRAM (CITALOPRAM) [Concomitant]
  5. PHENYTOIN [Concomitant]
  6. ROSUVASTATIN [Concomitant]
  7. MULTIVITAMIN [Concomitant]
  8. SENNA (SENNA) [Concomitant]
  9. SEROQUEL [Concomitant]

REACTIONS (5)
  - DEPRESSED LEVEL OF CONSCIOUSNESS [None]
  - DRUG INEFFECTIVE [None]
  - EATING DISORDER [None]
  - OPISTHOTONUS [None]
  - UNEVALUABLE EVENT [None]
